FAERS Safety Report 14148856 (Version 1)
Quarter: 2017Q4

REPORT INFORMATION
  Report Type: Spontaneous
  Country: AT (occurrence: AT)
  Receive Date: 20171101
  Receipt Date: 20171101
  Transmission Date: 20180321
  Serious: Yes (Life-Threatening)
  Sender: FDA-Public Use
  Company Number: AT-PFIZER INC-2017466582

PATIENT
  Age: 53 Year
  Sex: Female

DRUGS (1)
  1. TAZONAM [Suspect]
     Active Substance: TAZOBACTAM
     Indication: INFECTION
     Dosage: UNK
     Route: 042
     Dates: start: 20170720, end: 20170720

REACTIONS (3)
  - Respiratory distress [Recovered/Resolved]
  - Sense of oppression [Recovered/Resolved]
  - Paraesthesia [Recovered/Resolved]

NARRATIVE: CASE EVENT DATE: 20170720
